FAERS Safety Report 5022716-9 (Version None)
Quarter: 2006Q2

REPORT INFORMATION
  Report Type: 
  Country: None (occurrence: None)
  Receive Date: 20060605
  Receipt Date: 20060524
  Transmission Date: 20061013
  Serious: Yes (Hospitalization)
  Sender: FDA-Public Use
  Company Number: JP200602003365

PATIENT
  Age: 80 Year
  Sex: Female

DRUGS (10)
  1. EVISTA [Suspect]
     Indication: OSTEOPOROSIS POSTMENOPAUSAL
     Dosage: 60 MG, DAILY (1/D), ORAL
     Route: 048
     Dates: start: 20060501
  2. WARFARIN (WARFARIN) [Concomitant]
  3. CEPHADOL (DIFENIDOL HYDROCHLORIDE) [Concomitant]
  4. METHYCOBAL (MECOBALAMIN) [Concomitant]
  5. LASIX [Concomitant]
  6. RENIVEZE /JPN/ (ENALAPRIL MALEATE) [Concomitant]
  7. TENORMIN [Concomitant]
  8. SIGMART (NICORANDIL) [Concomitant]
  9. LANSOPRAZOLE [Concomitant]
  10. SELTOUCH (FELBINAC) [Concomitant]

REACTIONS (1)
  - COAGULATION TEST ABNORMAL [None]
